FAERS Safety Report 10612753 (Version 2)
Quarter: 2015Q4

REPORT INFORMATION
  Report Type: Report from Study
  Country: VE (occurrence: VE)
  Receive Date: 20141127
  Receipt Date: 20151216
  Transmission Date: 20160304
  Serious: Yes (Life-Threatening, Other)
  Sender: FDA-Public Use
  Company Number: VE-ABBVIE-14K-178-1312996-00

PATIENT
  Age: 50 Year
  Sex: Female
  Weight: 88 kg

DRUGS (5)
  1. CAPOTEN [Concomitant]
     Active Substance: CAPTOPRIL
     Indication: CAROTID ARTERY OCCLUSION
     Route: 048
     Dates: start: 201411
  2. GLUCOPHAGE [Concomitant]
     Active Substance: METFORMIN HYDROCHLORIDE
     Indication: CAROTID ARTERY OCCLUSION
     Route: 048
     Dates: start: 201411
  3. PLAVIX [Concomitant]
     Active Substance: CLOPIDOGREL BISULFATE
     Indication: CAROTID ARTERY OCCLUSION
     Route: 048
     Dates: start: 201411
  4. LIPITOR [Concomitant]
     Active Substance: ATORVASTATIN CALCIUM
     Indication: CAROTID ARTERY OCCLUSION
     Route: 048
     Dates: start: 201411
  5. HUMIRA [Suspect]
     Active Substance: ADALIMUMAB
     Indication: PSORIASIS
     Route: 058
     Dates: start: 20100503, end: 201312

REACTIONS (3)
  - Angina pectoris [Recovered/Resolved]
  - Carotid artery occlusion [Recovering/Resolving]
  - Carotid artery occlusion [Recovering/Resolving]

NARRATIVE: CASE EVENT DATE: 201311
